FAERS Safety Report 10455007 (Version 3)
Quarter: 2014Q4

REPORT INFORMATION
  Report Type: Spontaneous
  Country: JP (occurrence: JP)
  Receive Date: 20140915
  Receipt Date: 20141008
  Transmission Date: 20150528
  Serious: Yes (Death)
  Sender: FDA-Public Use
  Company Number: JP-009507513-1409JPN005213

PATIENT
  Age: 77 Year
  Sex: Male
  Weight: 54 kg

DRUGS (13)
  1. HEPARIN SODIUM. [Concomitant]
     Active Substance: HEPARIN SODIUM
     Indication: ATRIAL FIBRILLATION
     Dosage: DIVIDED DOSE FREQUENCY: 10 THOUSAND-MILLION UNIT
     Route: 041
     Dates: start: 20140819
  2. ONOACT [Concomitant]
     Active Substance: LANDIOLOL HYDROCHLORIDE
     Indication: ATRIAL FIBRILLATION
     Dosage: 4MG/ H, DAILY DOSE UNKNOWN
     Route: 041
     Dates: start: 20140808
  3. ALBUMIN HUMAN [Concomitant]
     Active Substance: ALBUMIN (HUMAN)
     Indication: HYPOALBUMINAEMIA
     Dosage: 12.5 G, QD
     Route: 051
     Dates: start: 20140820, end: 20140821
  4. CANCIDAS [Suspect]
     Active Substance: CASPOFUNGIN ACETATE
     Indication: BRONCHOPULMONARY ASPERGILLOSIS
     Dosage: 50 MG, QD
     Route: 041
     Dates: start: 20140822, end: 20140827
  5. DEXMEDETOMIDINE HYDROCHLORIDE. [Concomitant]
     Active Substance: DEXMEDETOMIDINE HYDROCHLORIDE
     Indication: CHRONIC RESPIRATORY FAILURE
     Dosage: 4 MICROGRAM/H, DAILY DOSE UNKNOWN
     Route: 041
     Dates: start: 20140810
  6. DEXMEDETOMIDINE HYDROCHLORIDE. [Concomitant]
     Active Substance: DEXMEDETOMIDINE HYDROCHLORIDE
     Indication: SEDATION
  7. VANCOMYCIN HYDROCHLORIDE. [Concomitant]
     Active Substance: VANCOMYCIN HYDROCHLORIDE
     Indication: PNEUMONIA BACTERIAL
     Dosage: 1 G, QD
     Route: 051
     Dates: start: 20140821, end: 20140821
  8. FINIBAX [Concomitant]
     Active Substance: DORIPENEM MONOHYDRATE
     Indication: PNEUMONIA BACTERIAL
     Dosage: 0.5 G, TID
     Route: 051
     Dates: start: 20140821, end: 20140827
  9. CANCIDAS [Suspect]
     Active Substance: CASPOFUNGIN ACETATE
     Indication: BRONCHOPULMONARY ASPERGILLOSIS
     Dosage: 70 MG, QD
     Route: 041
     Dates: start: 20140821, end: 20140821
  10. VANCOMYCIN HYDROCHLORIDE. [Concomitant]
     Active Substance: VANCOMYCIN HYDROCHLORIDE
     Dosage: 500 MG, BID
     Route: 051
     Dates: start: 20140822, end: 20140825
  11. PREDONINE [Concomitant]
     Active Substance: PREDNISOLONE\PREDNISOLONE ACETATE\PREDNISOLONE SODIUM SUCCINATE
     Indication: INTERSTITIAL LUNG DISEASE
     Dosage: 40 MG, QD
     Route: 051
     Dates: start: 20140812, end: 20140827
  12. HUMALOG [Concomitant]
     Active Substance: INSULIN LISPRO
     Indication: DIABETES MELLITUS
     Dosage: 6 (UNIT REPORTED AS UNDER 1000 UNIT), BID
     Route: 058
     Dates: start: 20140819, end: 20140827
  13. MORPHINE HYDROCHLORIDE HYDRATE [Concomitant]
     Active Substance: MORPHINE HYDROCHLORIDE
     Indication: CHRONIC RESPIRATORY FAILURE
     Dosage: 10 MG, QD (DIVIDED DOSE FREQUENCY UNKNOWN))
     Route: 051
     Dates: start: 20140812

REACTIONS (8)
  - Neutrophil count increased [Not Recovered/Not Resolved]
  - Drug ineffective [Unknown]
  - Body temperature increased [Not Recovered/Not Resolved]
  - Bronchopulmonary aspergillosis [Fatal]
  - Hepatic function abnormal [Not Recovered/Not Resolved]
  - Mechanical ventilation [Fatal]
  - Chronic respiratory failure [Fatal]
  - White blood cell count increased [Not Recovered/Not Resolved]

NARRATIVE: CASE EVENT DATE: 20140822
